FAERS Safety Report 7391926-8 (Version None)
Quarter: 2011Q2

REPORT INFORMATION
  Report Type: 
  Country: None (occurrence: None)
  Receive Date: 20110404
  Receipt Date: 20110324
  Transmission Date: 20111010
  Serious: Yes (Death, Other)
  Sender: FDA-Public Use
  Company Number: US-BAXTER-2010BH003644

PATIENT
  Age: 66 Year
  Sex: Female

DRUGS (18)
  1. HEPARIN SODIUM INJECTION [Suspect]
     Route: 058
     Dates: start: 20080119, end: 20080208
  2. HEPARIN SODIUM INJECTION [Suspect]
     Route: 058
     Dates: start: 20080122, end: 20080205
  3. HEPARIN SODIUM INJECTION [Suspect]
     Route: 058
     Dates: start: 20080122, end: 20080205
  4. ZOFRAN [Concomitant]
     Indication: PRODUCT USED FOR UNKNOWN INDICATION
     Route: 065
  5. MORPHINE [Concomitant]
     Indication: PRODUCT USED FOR UNKNOWN INDICATION
     Route: 065
  6. CEFEPIME [Concomitant]
     Indication: PRODUCT USED FOR UNKNOWN INDICATION
     Route: 065
  7. DEPAKOTE [Concomitant]
     Indication: PRODUCT USED FOR UNKNOWN INDICATION
     Route: 065
  8. ACETAMINOPHEN [Concomitant]
     Indication: PRODUCT USED FOR UNKNOWN INDICATION
     Route: 065
  9. HEPARIN SODIUM INJECTION [Suspect]
     Indication: MITRAL VALVE REPLACEMENT
     Route: 042
     Dates: start: 20080119, end: 20080208
  10. HEPARIN SODIUM INJECTION [Suspect]
     Route: 058
     Dates: start: 20080119, end: 20080208
  11. SYNTHROID [Concomitant]
     Indication: PRODUCT USED FOR UNKNOWN INDICATION
     Route: 065
  12. ATIVAN [Concomitant]
     Indication: PRODUCT USED FOR UNKNOWN INDICATION
     Route: 065
  13. COLACE [Concomitant]
     Indication: PRODUCT USED FOR UNKNOWN INDICATION
     Route: 065
  14. PERCOCET [Concomitant]
     Indication: PRODUCT USED FOR UNKNOWN INDICATION
     Route: 065
  15. NEXIUM [Concomitant]
     Indication: PRODUCT USED FOR UNKNOWN INDICATION
     Route: 065
  16. ANTIDEPRESSANTS [Concomitant]
     Indication: PRODUCT USED FOR UNKNOWN INDICATION
     Route: 065
  17. GENTAMICIN [Concomitant]
     Indication: PRODUCT USED FOR UNKNOWN INDICATION
     Route: 065
  18. HEPARIN SODIUM INJECTION [Suspect]
     Indication: THROMBOSIS PROPHYLAXIS
     Route: 042
     Dates: start: 20080119, end: 20080208

REACTIONS (19)
  - CARDIAC FAILURE [None]
  - DYSPHAGIA [None]
  - DRUG HYPERSENSITIVITY [None]
  - ABDOMINAL PAIN [None]
  - PULMONARY OEDEMA [None]
  - COGNITIVE DISORDER [None]
  - HEADACHE [None]
  - RESPIRATORY FAILURE [None]
  - CARDIAC ARREST [None]
  - LETHARGY [None]
  - ENDOCARDITIS [None]
  - CHEST PAIN [None]
  - ASTHENIA [None]
  - HYPOTENSION [None]
  - HALLUCINATION [None]
  - DYSPNOEA [None]
  - RENAL FAILURE [None]
  - HEPARIN-INDUCED THROMBOCYTOPENIA [None]
  - NEUROLOGICAL DECOMPENSATION [None]
